FAERS Safety Report 14760213 (Version 3)
Quarter: 2018Q3

REPORT INFORMATION
  Report Type: Spontaneous
  Country: US (occurrence: US)
  Receive Date: 20180413
  Receipt Date: 20180706
  Transmission Date: 20181010
  Serious: Yes (Death)
  Sender: FDA-Public Use
  Company Number: US-JNJFOC-20180401686

PATIENT
  Sex: Male

DRUGS (5)
  1. QUINAPRIL. [Concomitant]
     Active Substance: QUINAPRIL
     Indication: CARDIAC DISORDER
     Route: 065
  2. IBUPROFEN. [Concomitant]
     Active Substance: IBUPROFEN
     Indication: NEOPLASM MALIGNANT
     Route: 065
  3. SIMVASTATIN. [Concomitant]
     Active Substance: SIMVASTATIN
     Indication: BLOOD CHOLESTEROL
     Route: 065
  4. ZYTIGA [Suspect]
     Active Substance: ABIRATERONE ACETATE
     Indication: PROSTATE CANCER
     Dosage: FOR 2 MONTHS
     Route: 048
     Dates: start: 201710
  5. OXYCODONE [Concomitant]
     Active Substance: OXYCODONE
     Indication: NEOPLASM MALIGNANT
     Route: 065

REACTIONS (2)
  - Bedridden [Unknown]
  - Prostate cancer [Fatal]
